FAERS Safety Report 6918608-8 (Version None)
Quarter: 2010Q3

REPORT INFORMATION
  Report Type: 
  Country: None (occurrence: None)
  Receive Date: 20100811
  Receipt Date: 20100604
  Transmission Date: 20110219
  Serious: No
  Sender: FDA-Public Use
  Company Number: US-ABBOTT-10P-163-0649776-00

PATIENT
  Sex: Female

DRUGS (3)
  1. NORVIR [Suspect]
     Indication: HIV INFECTION
  2. NORVIR [Suspect]
     Indication: ANTIRETROVIRAL THERAPY
  3. ATAZANAVIR [Concomitant]
     Indication: HIV INFECTION

REACTIONS (1)
  - PRURITUS [None]
